FAERS Safety Report 7737364-7 (Version None)
Quarter: 2011Q3

REPORT INFORMATION
  Report Type: 
  Country: None (occurrence: None)
  Receive Date: 20110908
  Receipt Date: 20110901
  Transmission Date: 20111222
  Serious: Yes (Other)
  Sender: FDA-Public Use
  Company Number: BR-ABBOTT-11P-020-0851658-00

PATIENT
  Sex: Female
  Weight: 81 kg

DRUGS (6)
  1. ENALAPRIL MALEATE [Concomitant]
     Indication: HYPERTENSION
     Route: 048
  2. CHLORTHALIDONE [Concomitant]
     Indication: DIURETIC THERAPY
     Route: 048
  3. HUMIRA [Suspect]
     Indication: RHEUMATOID ARTHRITIS
     Route: 058
     Dates: start: 20090701
  4. PANTOPRAZOLE [Concomitant]
     Indication: PROPHYLAXIS
     Route: 048
  5. DEFLANIL [Concomitant]
     Indication: RHEUMATOID ARTHRITIS
     Route: 048
  6. PANTOPRAZOLE [Concomitant]
     Indication: GASTRIC DISORDER

REACTIONS (9)
  - INJECTION SITE PAIN [None]
  - HEADACHE [None]
  - GLAUCOMA [None]
  - PAIN IN EXTREMITY [None]
  - INJECTION SITE HAEMATOMA [None]
  - DIZZINESS [None]
  - LABYRINTHITIS [None]
  - CATARACT [None]
  - NERVOUSNESS [None]
